FAERS Safety Report 4757330-3 (Version None)
Quarter: 2005Q3

REPORT INFORMATION
  Report Type: 
  Country: None (occurrence: None)
  Receive Date: 20050829
  Receipt Date: 20050815
  Transmission Date: 20060218
  Serious: Yes (Death, Other)
  Sender: FDA-Public Use
  Company Number: 2005118802

PATIENT
  Age: 43 Year
  Sex: Female

DRUGS (1)
  1. VIAGRA [Suspect]
     Indication: PULMONARY HYPERTENSION
     Dosage: 200 MG (50 MG, 1 IN 1 D), ORAL
     Route: 048
     Dates: start: 20030101, end: 20050801

REACTIONS (6)
  - COUGH [None]
  - DYSPNOEA [None]
  - INFLUENZA [None]
  - RESPIRATORY FAILURE [None]
  - RESPIRATORY TRACT INFECTION [None]
  - SPUTUM DISCOLOURED [None]
